FAERS Safety Report 9833533 (Version 1)
Quarter: 2014Q1

REPORT INFORMATION
  Report Type: Spontaneous
  Country: GB (occurrence: GB)
  Receive Date: 20140122
  Receipt Date: 20140122
  Transmission Date: 20141002
  Serious: Yes (Other)
  Sender: FDA-Public Use
  Company Number: GB-ACCORD-021346

PATIENT
  Age: 40 Year
  Sex: Male
  Weight: 92 kg

DRUGS (2)
  1. AMIAS [Concomitant]
  2. AMLODIPINE [Suspect]
     Indication: HYPERTENSION
     Route: 048

REACTIONS (2)
  - Gingival bleeding [Unknown]
  - Gingival swelling [Recovered/Resolved]
